FAERS Safety Report 6335288-3 (Version None)
Quarter: 2009Q3

REPORT INFORMATION
  Report Type: 
  Country: None (occurrence: None)
  Receive Date: 20090831
  Receipt Date: 20090819
  Transmission Date: 20100115
  Serious: Yes (Death)
  Sender: FDA-Public Use
  Company Number: JP-PFIZER INC-2009251776

PATIENT
  Age: 62 Year

DRUGS (8)
  1. SUNITINIB MALATE [Suspect]
     Indication: RENAL CELL CARCINOMA
     Dosage: 50 MG, 1X/DAY
     Route: 048
     Dates: start: 20090527, end: 20090720
  2. MUCODYNE [Concomitant]
     Dosage: UNK
     Route: 048
     Dates: start: 20090610, end: 20090802
  3. JUZENTAIHOTO [Concomitant]
     Dosage: UNK
     Route: 048
     Dates: start: 20090624, end: 20090802
  4. THYRADIN [Concomitant]
     Dosage: UNK
     Route: 048
     Dates: start: 20090626, end: 20090802
  5. CODEINE PHOSPHATE [Concomitant]
     Dosage: UNK
     Route: 048
     Dates: start: 20090626, end: 20090802
  6. MAGNESIUM OXIDE [Concomitant]
     Dosage: UNK
     Route: 048
  7. LOXONIN [Concomitant]
     Dosage: UNK
     Route: 048
     Dates: end: 20090802
  8. TAKEPRON [Concomitant]
     Dosage: UNK
     Route: 048
     Dates: start: 20090704, end: 20090802

REACTIONS (1)
  - TUMOUR HAEMORRHAGE [None]
